FAERS Safety Report 6845701-0 (Version None)
Quarter: 2010Q3

REPORT INFORMATION
  Report Type: 
  Country: None (occurrence: None)
  Receive Date: 20100715
  Receipt Date: 20070828
  Transmission Date: 20110219
  Serious: No
  Sender: FDA-Public Use
  Company Number: US-PFIZER INC-2007072654

PATIENT
  Sex: Female
  Weight: 72.3 kg

DRUGS (13)
  1. CHANTIX [Suspect]
     Indication: SMOKING CESSATION THERAPY
     Route: 048
     Dates: start: 20070809
  2. ATIVAN [Concomitant]
  3. LIPITOR [Concomitant]
  4. TIMOPTOL [Concomitant]
  5. BIMATOPROST [Concomitant]
  6. TOPROL-XL [Concomitant]
  7. HYDROCHLOROTHIAZIDE [Concomitant]
  8. ALL OTHER THERAPEUTIC PRODUCTS [Concomitant]
  9. FOSAMAX [Concomitant]
  10. SEROQUEL [Concomitant]
  11. PAXIL [Concomitant]
  12. ZETIA [Concomitant]
  13. PRILOSEC [Concomitant]

REACTIONS (1)
  - ABDOMINAL DISCOMFORT [None]
